FAERS Safety Report 13539389 (Version 2)
Quarter: 2017Q3

REPORT INFORMATION
  Report Type: Spontaneous
  Country: US (occurrence: US)
  Receive Date: 20170512
  Receipt Date: 20170710
  Transmission Date: 20171127
  Serious: No
  Sender: FDA-Public Use
  Company Number: US-PFIZER INC-2017203934

PATIENT
  Sex: Female

DRUGS (1)
  1. XELJANZ XR [Suspect]
     Active Substance: TOFACITINIB CITRATE
     Dosage: 11 MG, DAILY

REACTIONS (12)
  - Wheezing [Unknown]
  - Arthralgia [Unknown]
  - Hand deformity [Unknown]
  - Hip deformity [Unknown]
  - Wrist deformity [Unknown]
  - Musculoskeletal pain [Unknown]
  - Pain [Not Recovered/Not Resolved]
  - Neuralgia [Not Recovered/Not Resolved]
  - Joint range of motion decreased [Unknown]
  - Herpes zoster [Unknown]
  - Rales [Unknown]
  - Limb deformity [Unknown]
